FAERS Safety Report 7487676-X (Version None)
Quarter: 2011Q2

REPORT INFORMATION
  Report Type: 
  Country: None (occurrence: None)
  Receive Date: 20110518
  Receipt Date: 20110503
  Transmission Date: 20111010
  Serious: Yes (Hospitalization, Other)
  Sender: FDA-Public Use
  Company Number: US-BAYER-200911493NA

PATIENT
  Age: 54 Year
  Sex: Female
  Weight: 58.957 kg

DRUGS (15)
  1. LIPITOR [Concomitant]
     Dosage: 20 MG, HS
     Route: 048
  2. TOPROL-XL [Concomitant]
     Dosage: 100 MG, QD
     Route: 048
  3. LASIX [Concomitant]
     Dosage: 40 MG, QD
  4. ALTACE [Concomitant]
     Dosage: 10 MG, BID
     Route: 048
     Dates: start: 19830101, end: 20050101
  5. COREG [Concomitant]
     Dosage: UNK
     Dates: start: 19830101, end: 20050101
  6. TRASYLOL [Suspect]
     Indication: CORONARY ARTERY BYPASS
     Dosage: 2 MU, UNK
     Route: 042
     Dates: start: 20021019
  7. REGLAN [Concomitant]
     Dosage: 10 MG, QID
     Route: 048
  8. ACCUPRIL [Concomitant]
     Dosage: UNK
     Dates: start: 19830101, end: 20050101
  9. CAPOTEN [Concomitant]
     Dosage: UNK
     Dates: start: 19830101, end: 20050101
  10. IMDUR [Concomitant]
     Dosage: 30 MG, QD
     Route: 048
  11. ELAVIL [Concomitant]
     Dosage: 25 MG, QD
     Route: 048
  12. PLAQUENIL [Concomitant]
     Dosage: 200 MG, BID
     Route: 048
  13. NEURONTIN [Concomitant]
     Dosage: 300 MG, BID
     Route: 048
  14. PLAVIX [Concomitant]
     Dosage: 75 MG, QD
     Route: 048
  15. HYDROCHLOROTHIAZIDE [Concomitant]
     Dosage: 200 MG, BID

REACTIONS (12)
  - ANXIETY [None]
  - FEAR [None]
  - INJURY [None]
  - RENAL FAILURE [None]
  - STRESS [None]
  - PAIN [None]
  - RENAL INJURY [None]
  - ANHEDONIA [None]
  - RENAL IMPAIRMENT [None]
  - MULTI-ORGAN FAILURE [None]
  - EMOTIONAL DISTRESS [None]
  - UNEVALUABLE EVENT [None]
